FAERS Safety Report 4388849-5 (Version None)
Quarter: 2004Q3

REPORT INFORMATION
  Report Type: 
  Country: None (occurrence: None)
  Receive Date: 20040701
  Receipt Date: 20040701
  Transmission Date: 20050211
  Serious: Yes (Other)
  Sender: FDA-Public Use
  Company Number: None

PATIENT
  Age: 20 Year
  Sex: Female
  Weight: 53.7966 kg

DRUGS (4)
  1. TAPAZOLE [Suspect]
     Indication: HYPERTHYROIDISM
     Dosage: TID PO/ APPROXIMATELY 1 1/2 MONTHS
     Route: 048
  2. DMPA [Concomitant]
  3. LANTUS [Concomitant]
  4. NOVOLOG [Concomitant]

REACTIONS (1)
  - ARTHRALGIA [None]
